FAERS Safety Report 7433446-8 (Version None)
Quarter: 2011Q2

REPORT INFORMATION
  Report Type: 
  Country: None (occurrence: None)
  Receive Date: 20110422
  Receipt Date: 20110413
  Transmission Date: 20111010
  Serious: Yes (Hospitalization)
  Sender: FDA-Public Use
  Company Number: US-ROCHE-766505

PATIENT
  Sex: Female

DRUGS (16)
  1. METHOTREXATE [Suspect]
     Dosage: FREQUENCY: QS
     Route: 048
     Dates: start: 20060803
  2. CYMBALTA [Concomitant]
     Dosage: FREQUENCY: EVERY DAY
     Route: 048
  3. METHOTREXATE [Suspect]
     Indication: RHEUMATOID ARTHRITIS
     Dosage: DOSE FORM PILLS,
     Route: 048
     Dates: start: 20040408, end: 20050607
  4. NEXIUM [Concomitant]
  5. KENALOG [Concomitant]
     Route: 030
     Dates: start: 20060922, end: 20060922
  6. PHENERGAN HCL [Concomitant]
     Dosage: INDICATION: INDICATION REPORTED AS ELECTIVE/COSMETIC SURGERY.
  7. BENADRYL [Concomitant]
     Dosage: INDICATION REPORTED AS ELECTIVE/COSMETIC SURGERY.
  8. METHOTREXATE [Suspect]
     Dosage: FRQUENCY: QS
     Route: 048
     Dates: start: 20050707, end: 20060322
  9. FOLIC ACID [Concomitant]
     Indication: RHEUMATOID ARTHRITIS
     Dosage: FORM: PILLS,
     Route: 048
  10. CYMBALTA [Concomitant]
     Indication: DEPRESSION
     Route: 048
     Dates: start: 20070604
  11. BLINDED TOCILIZUMAB [Suspect]
     Indication: RHEUMATOID ARTHRITIS
     Dosage: LAST DOSE PRIOR TO SAE ON 15 NOV 2010.
     Route: 042
  12. KENALOG [Concomitant]
     Dosage: STAT DOSE, INDICATION: RIGHT TROCHANTER BURSITIS
     Route: 030
     Dates: start: 20070309, end: 20070309
  13. KEFLEX [Concomitant]
     Dosage: INDICATION REPORTED AS ELECTIVE/COSMETIC SURGERY.
  14. FLONASE [Concomitant]
     Dosage: DOSE: 2 SPRAY, FREQUENCY: EVERY DAY.
     Route: 045
     Dates: start: 20080302, end: 20080901
  15. DEPO-MEDROL [Concomitant]
     Dosage: FREQUENCY: STAT DOSE
     Route: 030
     Dates: start: 20070309, end: 20070309
  16. VALIUM [Concomitant]
     Dosage: INDICATION REPORTED AS ELECTIVE/COSMETIC SURGERY.

REACTIONS (1)
  - MYOCARDIAL INFARCTION [None]
